FAERS Safety Report 8904748 (Version 2)
Quarter: 2015Q1

REPORT INFORMATION
  Report Type: Spontaneous
  Country: US (occurrence: US)
  Receive Date: 20121113
  Receipt Date: 20150304
  Transmission Date: 20150721
  Serious: No
  Sender: FDA-Public Use
  Company Number: US-ASTRAZENECA-2012SE84188

PATIENT
  Age: 54 Year
  Sex: Male
  Weight: 93.4 kg

DRUGS (15)
  1. PROVENTIL HFA [Concomitant]
     Active Substance: ALBUTEROL SULFATE
  2. NURONTIN [Concomitant]
     Indication: NEUROPATHY PERIPHERAL
     Route: 048
     Dates: start: 2013
  3. DOLOPHINE [Concomitant]
     Active Substance: METHADONE HYDROCHLORIDE
     Indication: KNEE OPERATION
     Route: 048
     Dates: start: 2010
  4. LIDEX [Concomitant]
     Active Substance: FLUOCINONIDE
  5. ZOLOFT [Concomitant]
     Active Substance: SERTRALINE HYDROCHLORIDE
  6. LASIX [Concomitant]
     Active Substance: FUROSEMIDE
     Indication: PERIPHERAL SWELLING
     Route: 048
     Dates: start: 2010
  7. DOLOPHINE [Concomitant]
     Active Substance: METHADONE HYDROCHLORIDE
     Indication: MUSCULOSKELETAL DISCOMFORT
     Route: 048
     Dates: start: 2010
  8. K-DUR [Concomitant]
     Active Substance: POTASSIUM CHLORIDE
  9. NEXIUM [Suspect]
     Active Substance: ESOMEPRAZOLE MAGNESIUM
     Route: 048
     Dates: start: 20121031
  10. XANAX [Concomitant]
     Active Substance: ALPRAZOLAM
     Indication: ANXIETY
     Route: 048
  11. TRIGLIDE [Concomitant]
     Active Substance: FENOFIBRATE
  12. BOLTAREN [Concomitant]
     Indication: LIMB DISCOMFORT
     Route: 061
     Dates: start: 20150205
  13. VENTOLIN HFA [Concomitant]
     Active Substance: ALBUTEROL SULFATE
  14. LIDODERM [Concomitant]
     Active Substance: LIDOCAINE
  15. CLOR-CON [Concomitant]

REACTIONS (16)
  - Generalised anxiety disorder [Unknown]
  - Dyssomnia [Unknown]
  - Cystitis interstitial [Unknown]
  - Depression [Unknown]
  - Eczema [Unknown]
  - Migraine without aura [Unknown]
  - Headache [Unknown]
  - Pain [Unknown]
  - Gastrooesophageal reflux disease [Unknown]
  - Osteoarthritis [Unknown]
  - Hyperlipidaemia [Unknown]
  - Intervertebral disc degeneration [Unknown]
  - Back pain [Unknown]
  - Arthralgia [Unknown]
  - Organic erectile dysfunction [Unknown]
  - Hypersensitivity [Unknown]

NARRATIVE: CASE EVENT DATE: 20150216
